FAERS Safety Report 10015566 (Version 1)
Quarter: 2014Q1

REPORT INFORMATION
  Report Type: Spontaneous
  Country: JP (occurrence: JP)
  Receive Date: 20140317
  Receipt Date: 20140317
  Transmission Date: 20141002
  Serious: No
  Sender: FDA-Public Use
  Company Number: JP-ELI_LILLY_AND_COMPANY-JP201403002613

PATIENT
  Age: 30 Year
  Sex: Male

DRUGS (1)
  1. CYMBALTA [Suspect]
     Indication: AFFECTIVE DISORDER
     Dosage: 40 MG, QD
     Route: 048
     Dates: start: 20120920, end: 20121018

REACTIONS (2)
  - Hepatic function abnormal [Recovered/Resolved]
  - Off label use [Unknown]
